FAERS Safety Report 10395905 (Version 1)
Quarter: 2014Q1

REPORT INFORMATION
  Report Type: Spontaneous
  Country: US (occurrence: None)
  Receive Date: 20130524
  Receipt Date: 20130524
  Transmission Date: 20141002
  Serious: No
  Sender: FDA-Public Use
  Company Number: PHEH2012US019590

PATIENT
  Age: 50 Year
  Sex: Female

DRUGS (16)
  1. GILENYA (FINGOLIMOD) CAPSULE, 0.5MG [Suspect]
     Indication: MULTIPLE SCLEROSIS
     Route: 048
     Dates: start: 201208, end: 20121222
  2. VITAMIN B12 (CYANOCOBALMIN) [Concomitant]
  3. VITAMIN C (ASCORBIC ACID) [Concomitant]
  4. NEXIUM (ESOMEPRAZOLE MAGNESIUM) [Concomitant]
  5. KEPPRA (LEVETIRACETAM) [Concomitant]
  6. TOPAMAX (TOPIRAMATE) [Concomitant]
  7. GABAPENTIN (GABAPENTIN) [Concomitant]
  8. MIRAPEX ^BOEHRINGER INGELHEIM^ (PRAMIPEXOLE DIHYDROCHLORIDE) [Concomitant]
  9. HYDROCHLOROTHIAZIDE (HYDROCHLOROTHIAZIDE) [Concomitant]
  10. SINGULAIR (MONTELUKAST) [Concomitant]
  11. I-VITE (ASCORBIC ACID, BETACAROTENE, COPPER, SELENIUM, TOCOPHERYL ACETATE, ZINC) [Concomitant]
  12. OXYCONTIN (OXYCODONE HYDROCHLORIDE) [Concomitant]
  13. OXYCODONE HYDROCHLORIDE (OXYCODONE HYDROCHLORIDE) [Concomitant]
  14. PROAIR (SALBUTAMOL SULFATE) (SALBUTAMOL SULFATE) [Concomitant]
  15. IMITREX ^CERENEX^ (SUMATRIPTAN SUCCINATE) [Concomitant]
  16. NAPROXEN (NAPROXEN) [Concomitant]

REACTIONS (3)
  - Rash [None]
  - Dyspnoea [None]
  - Drug ineffective [None]
